FAERS Safety Report 8317810-0 (Version None)
Quarter: 2012Q2

REPORT INFORMATION
  Report Type: 
  Country: None (occurrence: None)
  Receive Date: 20120427
  Receipt Date: 20120417
  Transmission Date: 20120825
  Serious: Yes (Other)
  Sender: FDA-Public Use
  Company Number: JP-JNJFOC-20120212210

PATIENT
  Sex: Male

DRUGS (8)
  1. ZOSYN [Concomitant]
     Indication: INFECTIOUS PLEURAL EFFUSION
     Route: 041
     Dates: start: 20111124, end: 20111125
  2. DIOVAN [Concomitant]
     Indication: HYPERTENSION
     Route: 048
  3. CHLORPHENIRAMINE MALEATE [Suspect]
     Indication: PRODUCT USED FOR UNKNOWN INDICATION
     Route: 065
  4. MUCODYNE [Concomitant]
     Indication: INFECTIOUS PLEURAL EFFUSION
     Route: 048
     Dates: start: 20111124, end: 20111209
  5. SIMVASTATIN [Concomitant]
     Indication: HYPERLIPIDAEMIA
     Route: 065
  6. ADVAIR DISKUS 100/50 [Concomitant]
     Indication: ASTHMA
     Route: 055
     Dates: start: 20080918
  7. DORIPENEM MONOHYDRATE [Suspect]
     Indication: INFECTIOUS PLEURAL EFFUSION
     Route: 041
     Dates: start: 20111126, end: 20111209
  8. CLARITHROMYCIN [Suspect]
     Indication: INFECTIOUS PLEURAL EFFUSION
     Route: 048
     Dates: start: 20111124, end: 20111209

REACTIONS (2)
  - URTICARIA [None]
  - ANURIA [None]
